FAERS Safety Report 7287385-6 (Version None)
Quarter: 2011Q1

REPORT INFORMATION
  Report Type: 
  Country: None (occurrence: None)
  Receive Date: 20110211
  Receipt Date: 20110203
  Transmission Date: 20110831
  Serious: Yes (Hospitalization)
  Sender: FDA-Public Use
  Company Number: US-US-EMD SERONO, INC.-7017408

PATIENT
  Sex: Male
  Weight: 82 kg

DRUGS (9)
  1. IMURAN [Concomitant]
  2. LAMICTAL [Concomitant]
  3. PHENERGAN [Concomitant]
  4. REBIF [Suspect]
     Route: 058
     Dates: start: 20100101
  5. LIPITOR [Concomitant]
     Indication: BLOOD CHOLESTEROL INCREASED
  6. REBIF [Suspect]
     Indication: MULTIPLE SCLEROSIS
     Route: 058
     Dates: start: 20050801, end: 20100501
  7. PROTONIX [Concomitant]
  8. SYMAX DUOTAB [Concomitant]
  9. DYAZIDE [Concomitant]
     Indication: HYPERTENSION

REACTIONS (8)
  - INFLUENZA LIKE ILLNESS [None]
  - LARYNGITIS [None]
  - MEGACOLON [None]
  - BRONCHITIS VIRAL [None]
  - COMPUTERISED TOMOGRAM ABNORMAL [None]
  - INJECTION SITE REACTION [None]
  - PSEUDOMEMBRANOUS COLITIS [None]
  - CLOSTRIDIAL INFECTION [None]
